FAERS Safety Report 8416253-9 (Version None)
Quarter: 2012Q2

REPORT INFORMATION
  Report Type: 
  Country: None (occurrence: None)
  Receive Date: 20120323
  Receipt Date: 20111219
  Transmission Date: 20120825
  Serious: Yes (Disabling)
  Sender: FDA-Public Use
  Company Number: 163-21880-11122831

PATIENT
  Age: 45 Year
  Sex: Female
  Weight: 73 kg

DRUGS (1)
  1. REVLIMID [Suspect]
     Indication: MULTIPLE MYELOMA
     Dosage: 25 MG, DAILY, PO
     Route: 048
     Dates: start: 20110803, end: 20111103

REACTIONS (1)
  - MULTIPLE MYELOMA [None]
